FAERS Safety Report 24315962 (Version 3)
Quarter: 2024Q4

REPORT INFORMATION
  Report Type: Spontaneous
  Country: CA (occurrence: CA)
  Receive Date: 20240913
  Receipt Date: 20241019
  Transmission Date: 20250115
  Serious: Yes (Hospitalization, Other)
  Sender: ACCORD
  Company Number: None

PATIENT
  Age: 14 Year
  Sex: Male

DRUGS (17)
  1. METHOTREXATE [Suspect]
     Active Substance: METHOTREXATE
     Indication: Prophylaxis against graft versus host disease
     Route: 065
  2. CYCLOPHOSPHAMIDE [Suspect]
     Active Substance: CYCLOPHOSPHAMIDE
     Indication: Bone marrow conditioning regimen
     Dosage: 750.0 MG/M2, 1 EVERY 1 DAYS
     Route: 065
  3. FILGRASTIM [Suspect]
     Active Substance: FILGRASTIM
     Indication: Bone marrow failure
     Dosage: 5 MICROGRAM/KILOGRAM, USED FROM DAYS 10 TO 25
     Route: 058
  4. FLUDARABINE [Suspect]
     Active Substance: FLUDARABINE PHOSPHATE
     Indication: Graft versus host disease
     Dosage: 1 EVERY 1 DAYS, 30.0 MG/M2?30 MILLIGRAM/SQ. METER, DAYS 6 TO 3
     Route: 065
  5. RITUXIMAB [Suspect]
     Active Substance: RITUXIMAB
     Indication: Epstein Barr virus positive mucocutaneous ulcer
     Route: 065
  6. PREDNISONE [Suspect]
     Active Substance: PREDNISONE
     Indication: Product used for unknown indication
     Dosage: 1 MILLIGRAM/KILOGRAM, QD
     Route: 065
  7. BOS TAURUS ADRENAL CORTEX CORTICOSTEROIDS [Suspect]
     Active Substance: BOS TAURUS ADRENAL CORTEX CORTICOSTEROIDS
     Indication: Aplastic anaemia
     Route: 065
  8. THYMOCYTE IMMUNE GLOBULIN NOS [Suspect]
     Active Substance: THYMOCYTE IMMUNE GLOBULIN NOS
     Indication: Bone marrow conditioning regimen
     Dosage: 1 EVERY 1 DAYS
     Route: 065
  9. ELTROMBOPAG [Suspect]
     Active Substance: ELTROMBOPAG
     Indication: Bone marrow failure
     Dosage: 50 MILLIGRAM, QD
     Route: 048
  10. SULFAMETHOXAZOLE\TRIMETHOPRIM [Concomitant]
     Active Substance: SULFAMETHOXAZOLE\TRIMETHOPRIM
     Indication: Cytomegalovirus infection
     Route: 065
  11. ACYCLOVIR [Concomitant]
     Active Substance: ACYCLOVIR
     Indication: Cytomegalovirus infection
     Route: 065
  12. TENOFOVIR DISOPROXIL [Concomitant]
     Active Substance: TENOFOVIR DISOPROXIL
     Indication: Perinatal HBV infection
     Dosage: 1 EVERY 1 DAYS?245 MILLIGRAM, QD
     Route: 048
  13. LETERMOVIR [Concomitant]
     Active Substance: LETERMOVIR
     Indication: Cytomegalovirus infection
     Route: 065
  14. DARBEPOETIN ALFA [Concomitant]
     Active Substance: DARBEPOETIN ALFA
     Indication: Bone marrow failure
     Dosage: 40 MICROGRAM (4 DOSAGE FORM)
     Route: 058
  15. ELTROMBOPAG [Suspect]
     Active Substance: ELTROMBOPAG
     Indication: Bone marrow failure
     Dosage: 100 MILLIGRAM, QD
     Route: 048
  16. ELTROMBOPAG [Suspect]
     Active Substance: ELTROMBOPAG
     Indication: Bone marrow failure
     Dosage: 150 MILLIGRAM, QD
     Route: 048
  17. ELTROMBOPAG [Suspect]
     Active Substance: ELTROMBOPAG
     Indication: Bone marrow failure
     Dosage: 50 MILLIGRAM, Q.O.D.
     Route: 048

REACTIONS (6)
  - BK virus infection [Unknown]
  - Off label use [Unknown]
  - Cystitis viral [Unknown]
  - Staphylococcal sepsis [Unknown]
  - Aspartate aminotransferase increased [Unknown]
  - Alanine aminotransferase increased [Unknown]
